FAERS Safety Report 7864349 (Version 2)
Quarter: 2013Q1

REPORT INFORMATION
  Report Type: Spontaneous
  Country: MX (occurrence: MX)
  Receive Date: 20110321
  Receipt Date: 20130129
  Transmission Date: 20140127
  Serious: Yes (Death, Hospitalization)
  Sender: FDA-Public Use
  Company Number: PHHY2011MX19101

PATIENT
  Age: 70 Year
  Sex: Male

DRUGS (5)
  1. GALVUS MET [Suspect]
     Indication: DIABETES MELLITUS
     Dosage: 1 DF, (850 MG METF AND 50 MG VILD), EVERY TWELVE HOURS
     Route: 048
     Dates: start: 201101
  2. CO-DIOVAN [Suspect]
     Indication: HYPERTENSION
     Dosage: 1 DF,(160 MG VALS AND 12.5 MG HCTZ), DAILY
     Route: 048
     Dates: start: 20110120
  3. CONCOR [Concomitant]
     Indication: HYPERTENSION
     Dosage: 5.0 MG, DAILY
     Route: 048
     Dates: start: 201101
  4. SERETIDE DISKUS [Concomitant]
     Indication: LUNG DISORDER
     Dosage: UNK UKN, UNK
     Dates: start: 201104
  5. FUROSEMIDE [Concomitant]
     Indication: FLUID RETENTION
     Dosage: EVERY TWELEVE HOURS

REACTIONS (6)
  - Cardio-respiratory arrest [Fatal]
  - Chronic obstructive pulmonary disease [Fatal]
  - Cardiac disorder [Not Recovered/Not Resolved]
  - Corneal disorder [Unknown]
  - Blindness [Recovered/Resolved]
  - Anaemia [Unknown]
